FAERS Safety Report 7101740-6 (Version None)
Quarter: 2010Q4

REPORT INFORMATION
  Report Type: 
  Country: None (occurrence: None)
  Receive Date: 20101115
  Receipt Date: 20101105
  Transmission Date: 20110411
  Serious: Yes (Other)
  Sender: FDA-Public Use
  Company Number: US-AMGEN-US336747

PATIENT

DRUGS (4)
  1. NPLATE [Suspect]
     Indication: IDIOPATHIC THROMBOCYTOPENIC PURPURA
     Dosage: UNK A?G/KG, UNK
     Dates: start: 20080904
  2. CORTICOSTEROID NOS [Concomitant]
     Dosage: UNK UNK, UNK
     Dates: start: 20070801
  3. IMMUNOGLOBULIN HUMAN NORMAL [Concomitant]
     Dosage: UNK UNK, UNK
     Dates: start: 20070801
  4. DANAZOL [Concomitant]
     Dosage: UNK UNK, UNK
     Dates: start: 20070901

REACTIONS (3)
  - EPISTAXIS [None]
  - MULTIPLE MYELOMA [None]
  - THROMBOCYTOPENIA [None]
